FAERS Safety Report 20567969 (Version 1)
Quarter: 2022Q1

REPORT INFORMATION
  Report Type: Spontaneous
  Country: US (occurrence: None)
  Receive Date: 20220308
  Receipt Date: 20220308
  Transmission Date: 20220423
  Serious: Yes (Other)
  Sender: FDA-Public Use
  Company Number: None

PATIENT
  Age: 70 Year
  Sex: Female
  Weight: 76.5 kg

DRUGS (1)
  1. ENTRESTO [Suspect]
     Active Substance: SACUBITRIL\VALSARTAN
     Indication: Cardiac failure
     Dosage: OTHER QUANTITY : 60 TABLET(S);?FREQUENCY : TWICE A DAY;?
     Route: 048
     Dates: start: 20220201, end: 20220306

REACTIONS (17)
  - Eye pruritus [None]
  - Pruritus [None]
  - Rhinorrhoea [None]
  - Burn oesophageal [None]
  - Condition aggravated [None]
  - Cough [None]
  - Fatigue [None]
  - Hypotension [None]
  - Gait disturbance [None]
  - Pulmonary oedema [None]
  - Pain of skin [None]
  - Skin burning sensation [None]
  - Insomnia [None]
  - Throat tightness [None]
  - Dysphonia [None]
  - Dysphonia [None]
  - Malaise [None]

NARRATIVE: CASE EVENT DATE: 20220219
